FAERS Safety Report 6396014-5 (Version None)
Quarter: 2009Q4

REPORT INFORMATION
  Report Type: 
  Country: None (occurrence: None)
  Receive Date: 20091007
  Receipt Date: 20090928
  Transmission Date: 20100525
  Serious: Yes (Death, Hospitalization)
  Sender: FDA-Public Use
  Company Number: CLOF-1000715

PATIENT
  Age: 75 Year
  Sex: Male

DRUGS (1)
  1. CLOLAR [Suspect]
     Indication: ANGIOIMMUNOBLASTIC T-CELL LYMPHOMA
     Dates: start: 20090901, end: 20090912

REACTIONS (10)
  - ANAEMIA [None]
  - CONFUSIONAL STATE [None]
  - DEHYDRATION [None]
  - DELIRIUM [None]
  - FEBRILE NEUTROPENIA [None]
  - GENERAL PHYSICAL HEALTH DETERIORATION [None]
  - HYPERURICAEMIA [None]
  - HYPOKALAEMIA [None]
  - NEUTROPENIA [None]
  - STREPTOCOCCAL BACTERAEMIA [None]
